FAERS Safety Report 5704867-6 (Version None)
Quarter: 2008Q2

REPORT INFORMATION
  Report Type: 
  Country: None (occurrence: None)
  Receive Date: 20080414
  Receipt Date: 20080318
  Transmission Date: 20081010
  Serious: No
  Sender: FDA-Public Use
  Company Number: US-BOEHRINGER INGELHEIM GMBH, GERMANY-2008-BP-04503BP

PATIENT
  Sex: Male

DRUGS (7)
  1. SPIRIVA [Suspect]
     Indication: CHRONIC OBSTRUCTIVE PULMONARY DISEASE
  2. SPIRIVA [Suspect]
     Indication: EMPHYSEMA
  3. SPIRIVA [Suspect]
     Indication: BRONCHITIS CHRONIC
  4. ALBUTEROL SULFATE [Concomitant]
     Indication: DYSPNOEA
  5. ATROVENT [Concomitant]
     Indication: DYSPNOEA
  6. FORADIL [Concomitant]
     Indication: DYSPNOEA
  7. ASMANEX TWISTHALER [Concomitant]
     Indication: DYSPNOEA

REACTIONS (1)
  - ADVERSE REACTION [None]
